FAERS Safety Report 10725350 (Version 4)
Quarter: 2015Q3

REPORT INFORMATION
  Report Type: Report from Study
  Country: DE (occurrence: DE)
  Receive Date: 20150121
  Receipt Date: 20150724
  Transmission Date: 20151125
  Serious: Yes (Hospitalization)
  Sender: FDA-Public Use
  Company Number: DE-ROCHE-1523103

PATIENT
  Age: 66 Year
  Sex: Male

DRUGS (9)
  1. METHOTREXATE [Suspect]
     Active Substance: METHOTREXATE
     Indication: RHEUMATOID ARTHRITIS
     Route: 065
  2. ARCOXIA [Concomitant]
     Active Substance: ETORICOXIB
  3. TAMSULOSIN [Concomitant]
     Active Substance: TAMSULOSIN
  4. ADENURIC [Concomitant]
     Active Substance: FEBUXOSTAT
  5. METHOTREXATE [Suspect]
     Active Substance: METHOTREXATE
     Route: 065
  6. PREDNISOLON [Concomitant]
     Active Substance: PREDNISOLONE
  7. OMEPRAZOL [Concomitant]
     Active Substance: OMEPRAZOLE
  8. TOCILIZUMAB [Suspect]
     Active Substance: TOCILIZUMAB
     Indication: RHEUMATOID ARTHRITIS
     Dosage: THERAPY RESTATRED ON 26/NOV/2014
     Route: 058
  9. FOLIC ACID. [Concomitant]
     Active Substance: FOLIC ACID

REACTIONS (3)
  - Ophthalmic herpes zoster [Not Recovered/Not Resolved]
  - Prostatitis [Recovered/Resolved]
  - VIIth nerve paralysis [Not Recovered/Not Resolved]

NARRATIVE: CASE EVENT DATE: 20140717
